FAERS Safety Report 11279017 (Version 1)
Quarter: 2015Q3

REPORT INFORMATION
  Report Type: Spontaneous
  Country: US (occurrence: US)
  Receive Date: 20150717
  Receipt Date: 20150717
  Transmission Date: 20151125
  Serious: Yes (Other)
  Sender: FDA-Public Use
  Company Number: US-TEVA-578843USA

PATIENT
  Sex: Male
  Weight: 95.34 kg

DRUGS (1)
  1. GLIMEPIRIDE. [Suspect]
     Active Substance: GLIMEPIRIDE
     Indication: DIABETES MELLITUS
     Dates: start: 201106

REACTIONS (4)
  - Diarrhoea [Unknown]
  - Fatigue [Unknown]
  - Cyanosis [Unknown]
  - Abdominal discomfort [Unknown]
